FAERS Safety Report 4957304-3 (Version None)
Quarter: 2006Q1

REPORT INFORMATION
  Report Type: 
  Country: None (occurrence: None)
  Receive Date: 20060323
  Receipt Date: 20060309
  Transmission Date: 20060701
  Serious: Yes (Hospitalization)
  Sender: FDA-Public Use
  Company Number: US-2006-005412

PATIENT
  Age: 67 Year
  Sex: Male

DRUGS (2)
  1. CAMPATH [Suspect]
     Indication: CHRONIC LYMPHOCYTIC LEUKAEMIA
     Dosage: RECEIVED TOTAL OF 1080MG,
     Dates: start: 20050801, end: 20051205
  2. FLUDARA [Suspect]
     Indication: CHRONIC LYMPHOCYTIC LEUKAEMIA
     Dosage: 3 DOSES PER CYCLE, INTRAVENOUS
     Route: 042
     Dates: start: 20050801, end: 20051205

REACTIONS (8)
  - ANAEMIA HAEMOLYTIC AUTOIMMUNE [None]
  - B-CELL LYMPHOMA [None]
  - CHRONIC LYMPHOCYTIC LEUKAEMIA TRANSFORMATION [None]
  - COOMBS POSITIVE HAEMOLYTIC ANAEMIA [None]
  - EOSINOPHILIA [None]
  - SPLENOMEGALY [None]
  - T-CELL LYMPHOMA [None]
  - THROMBOCYTOPENIA [None]
